FAERS Safety Report 8076597-X (Version None)
Quarter: 2012Q1

REPORT INFORMATION
  Report Type: 
  Country: None (occurrence: None)
  Receive Date: 20120127
  Receipt Date: 20120120
  Transmission Date: 20120608
  Serious: Yes (Death, Hospitalization)
  Sender: FDA-Public Use
  Company Number: DE-ELI_LILLY_AND_COMPANY-DE201012002339

PATIENT
  Sex: Female
  Weight: 64.2 kg

DRUGS (12)
  1. LASIX [Concomitant]
     Dosage: 20 MG, UNK
  2. NECITUMUMAB (11F8) (LY3012211) [Suspect]
     Indication: NON-SMALL CELL LUNG CANCER
     Dosage: 800 MG, OTHER
     Route: 042
     Dates: start: 20101208, end: 20101208
  3. CISPLATIN [Suspect]
     Indication: NON-SMALL CELL LUNG CANCER
     Dosage: 133 MG, OTHER
     Route: 042
     Dates: start: 20101208, end: 20101208
  4. PIPERACILLIN AND TAZOBACTAM [Concomitant]
  5. RAMIPRIL [Concomitant]
     Dosage: 2.5 MG, UNK
  6. OXIS [Concomitant]
     Dosage: 12 D/F, UNK
  7. LORAZEPAM [Concomitant]
     Dosage: 0.5 MG, UNK
  8. ASPIRIN [Concomitant]
     Dosage: 100 MG, UNK
  9. CLOPIDOGREL [Concomitant]
  10. SPIRIVA [Concomitant]
     Dosage: 18 D/F, UNK
  11. PEMETREXED [Suspect]
     Indication: NON-SMALL CELL LUNG CANCER
     Dosage: 830 MG, OTHER
     Route: 042
     Dates: start: 20101208, end: 20101208
  12. BISOPROLOL FUMARATE [Concomitant]
     Dosage: 5 MG, UNK

REACTIONS (2)
  - CARDIAC FAILURE [None]
  - DEATH [None]
